FAERS Safety Report 18667818 (Version 1)
Quarter: 2020Q4

REPORT INFORMATION
  Report Type: Other
  Country: US (occurrence: US)
  Receive Date: 20201228
  Receipt Date: 20201228
  Transmission Date: 20210114
  Serious: Yes (Hospitalization)
  Sender: FDA-Public Use
  Company Number: US-ROCHE-2735209

PATIENT
  Sex: Female

DRUGS (5)
  1. OCREVUS [Suspect]
     Active Substance: OCRELIZUMAB
     Indication: PRIMARY PROGRESSIVE MULTIPLE SCLEROSIS
     Dosage: PRESCRIBED WITH 300 MG IV EVERY 15 DAY TWICE AND 600 MG, EVERY 6 MONTHS?DATE OF TREATMENT: 15/OCT/20
     Route: 042
     Dates: start: 20191015
  2. OCREVUS [Suspect]
     Active Substance: OCRELIZUMAB
     Dosage: IN 500 ML NS, INFUSE OVER 3-5 HOURS OR LONGER
     Route: 042
  3. DIPHENHYDRAMINE. [Concomitant]
     Active Substance: DIPHENHYDRAMINE
     Dosage: 30-60 MINUTES PRIOR TO INFUSION
     Route: 042
  4. METHYLPREDNISOLONE. [Concomitant]
     Active Substance: METHYLPREDNISOLONE
     Dosage: 30 MIN PRIOR TO INFUSION
     Route: 042
  5. TYLENOL [Concomitant]
     Active Substance: ACETAMINOPHEN
     Dosage: 1000 MG 30 MINUTES PRIOR TO INFUSION

REACTIONS (3)
  - Cystitis [Not Recovered/Not Resolved]
  - Oral pain [Not Recovered/Not Resolved]
  - Urinary tract infection [Not Recovered/Not Resolved]
